FAERS Safety Report 8420866-8 (Version None)
Quarter: 2012Q2

REPORT INFORMATION
  Report Type: 
  Country: None (occurrence: None)
  Receive Date: 20120531
  Receipt Date: 20120515
  Transmission Date: 20120825
  Serious: Yes (Other)
  Sender: FDA-Public Use
  Company Number: FK201201422

PATIENT
  Age: 11 Year
  Sex: Male

DRUGS (7)
  1. METHOTREXATE [Suspect]
     Indication: BONE SARCOMA
     Dosage: 1200 MG/M2
  2. VINCRISTINE [Suspect]
     Indication: BONE SARCOMA
     Dosage: 150 MG/M2
  3. IFOSFAMIDE [Concomitant]
  4. ETOPOSIDE [Suspect]
     Indication: BONE SARCOMA
     Dosage: 150 MG/M2
  5. CYCLOPHOSPHAMIDE [Concomitant]
  6. DOXORUBICIN HCL [Concomitant]
  7. CISPLATIN [Concomitant]

REACTIONS (3)
  - CONTRAST MEDIA REACTION [None]
  - ANAPHYLACTIC REACTION [None]
  - INFUSION RELATED REACTION [None]
